FAERS Safety Report 15426015 (Version 1)
Quarter: 2018Q3

REPORT INFORMATION
  Report Type: Spontaneous
  Country: CN (occurrence: CN)
  Receive Date: 20180925
  Receipt Date: 20180925
  Transmission Date: 20181010
  Serious: Yes (Other)
  Sender: FDA-Public Use
  Company Number: PHHY2018CN103909

PATIENT
  Age: 73 Year
  Sex: Female

DRUGS (10)
  1. POVIDONE?IODINE. [Concomitant]
     Active Substance: POVIDONE-IODINE
     Indication: PREOPERATIVE CARE
     Route: 065
  2. DEXAMETHASONE SODIUM PHOSPHATE. [Concomitant]
     Active Substance: DEXAMETHASONE SODIUM PHOSPHATE
     Indication: PRODUCT USED FOR UNKNOWN INDICATION
     Route: 065
  3. TOBRAMYCIN AND DEXAMETHASONE [Suspect]
     Active Substance: DEXAMETHASONE\TOBRAMYCIN
     Indication: POSTOPERATIVE CARE
     Route: 047
  4. ATROPINE SULFATE. [Concomitant]
     Active Substance: ATROPINE SULFATE
     Indication: PRODUCT USED FOR UNKNOWN INDICATION
     Route: 065
  5. DIFEI [Concomitant]
     Indication: PREOPERATIVE CARE
     Route: 065
  6. POVIDONE?IODINE. [Concomitant]
     Active Substance: POVIDONE-IODINE
     Indication: PREOPERATIVE CARE
     Route: 065
  7. TOBRADEX [Suspect]
     Active Substance: DEXAMETHASONE\TOBRAMYCIN
     Indication: POSTOPERATIVE CARE
     Route: 047
  8. LEVOFLOXACIN. [Concomitant]
     Active Substance: LEVOFLOXACIN
     Indication: POSTOPERATIVE CARE
  9. LEVOFLOXACIN. [Concomitant]
     Active Substance: LEVOFLOXACIN
     Indication: PREOPERATIVE CARE
     Route: 065
  10. DICLOFENAC SODIUM. [Concomitant]
     Active Substance: DICLOFENAC SODIUM
     Indication: PRODUCT USED FOR UNKNOWN INDICATION
     Route: 065

REACTIONS (9)
  - Keratic precipitates [Recovering/Resolving]
  - Anterior chamber flare [Recovering/Resolving]
  - Ocular hyperaemia [Recovering/Resolving]
  - Eye pain [Recovering/Resolving]
  - Photophobia [Recovering/Resolving]
  - Conjunctival hyperaemia [Recovering/Resolving]
  - Vision blurred [Recovering/Resolving]
  - Endophthalmitis [Recovering/Resolving]
  - Scleritis [Recovering/Resolving]

NARRATIVE: CASE EVENT DATE: 20180607
